FAERS Safety Report 7093065-2 (Version None)
Quarter: 2010Q4

REPORT INFORMATION
  Report Type: 
  Country: None (occurrence: None)
  Receive Date: 20101110
  Receipt Date: 20101102
  Transmission Date: 20110411
  Serious: Yes (Death, Hospitalization)
  Sender: FDA-Public Use
  Company Number: US-ELI_LILLY_AND_COMPANY-US201007000191

PATIENT
  Sex: Male
  Weight: 86.621 kg

DRUGS (20)
  1. PEMETREXED [Suspect]
     Indication: NON-SMALL CELL LUNG CANCER
     Dosage: 500 MG, DAY 1 EVERY 21 DAYS
     Route: 042
     Dates: start: 20100202, end: 20100413
  2. PEMETREXED [Suspect]
     Dosage: 375 MG/M2, DAY 1 EVERY 21 DAYS
     Route: 042
     Dates: start: 20100413, end: 20100413
  3. PEMETREXED [Suspect]
     Dosage: 281 MG/M2, DAY 1 EVERY 21 DAYS
     Route: 042
     Dates: start: 20100504, end: 20100525
  4. CARBOPLATIN [Suspect]
     Indication: NON-SMALL CELL LUNG CANCER
     Dosage: 6 AUC, DAY 1 EVERY 21 DAYS
     Route: 042
     Dates: start: 20100202, end: 20100413
  5. BEVACIZUMAB [Suspect]
     Indication: NON-SMALL CELL LUNG CANCER
     Dosage: 15 MG/KG, DAY 1 EVERY 21 DAYS
     Route: 042
     Dates: start: 20100202, end: 20100413
  6. BEVACIZUMAB [Suspect]
     Dosage: 15 MG/KG, DAY 1 EVERY 21 DAYS
     Route: 042
     Dates: start: 20100504, end: 20100525
  7. FOLIC ACID [Concomitant]
     Indication: SUPPLEMENTATION THERAPY
     Dosage: 1 MG, DAILY (1/D)
     Route: 048
  8. FOLIC ACID [Concomitant]
     Dosage: 1 MG, DAILY (1/D)
     Dates: start: 20100121
  9. VITAMIN B-12 [Concomitant]
     Indication: SUPPLEMENTATION THERAPY
     Route: 030
  10. ALLOPURINOL [Concomitant]
     Indication: PROPHYLAXIS
     Dosage: 300 MG, DAILY (1/D)
     Dates: start: 19950101
  11. IBUPROFEN [Concomitant]
     Indication: BACK PAIN
     Dosage: 400 MG, AS NEEDED
     Dates: start: 20070101
  12. DILTIAZEM [Concomitant]
     Indication: HYPERTENSION
     Dosage: 360 MG, DAILY (1/D)
     Dates: start: 19920101
  13. FLOMAX [Concomitant]
     Indication: BENIGN PROSTATIC HYPERPLASIA
     Dosage: 0.4 MG, DAILY (1/D)
     Dates: start: 20091201
  14. IRON [Concomitant]
     Indication: ANAEMIA
     Dosage: 324 MG, DAILY (1/D)
     Dates: start: 20091230
  15. ATENOLOL [Concomitant]
     Indication: HYPERTENSION
     Dosage: 50 MG, DAILY (1/D)
     Dates: start: 20100213
  16. SIMVASTATIN [Concomitant]
     Indication: HYPERCHOLESTEROLAEMIA
     Dosage: 40 MG, DAILY (1/D)
     Dates: start: 19920101
  17. POTASSIUM CHLORIDE [Concomitant]
     Indication: HYPOKALAEMIA
     Dosage: 20 MEQ, 2/D
     Dates: start: 20100406
  18. CHERATUSSIN [Concomitant]
     Indication: COUGH
     Dosage: 1 D/F, AS NEEDED
     Dates: start: 20100309
  19. OMEPRAZOLE [Concomitant]
     Indication: GASTROOESOPHAGEAL REFLUX DISEASE
     Dosage: 20 MG, DAILY (1/D)
     Dates: start: 20050101
  20. SENOKOT [Concomitant]
     Indication: CONSTIPATION
     Dosage: UNK, AS NEEDED
     Dates: start: 20100223

REACTIONS (8)
  - BILE DUCT OBSTRUCTION [None]
  - DEATH [None]
  - DIVERTICULUM [None]
  - FATIGUE [None]
  - HYPERBILIRUBINAEMIA [None]
  - METASTASES TO PANCREAS [None]
  - PLATELET COUNT DECREASED [None]
  - QUALITY OF LIFE DECREASED [None]
